FAERS Safety Report 13684080 (Version 1)
Quarter: 2017Q2

REPORT INFORMATION
  Report Type: Spontaneous
  Country: FR (occurrence: FR)
  Receive Date: 20170623
  Receipt Date: 20170623
  Transmission Date: 20170830
  Serious: Yes (Hospitalization)
  Sender: FDA-Public Use
  Company Number: FR-JNJFOC-20170612406

PATIENT
  Age: 0 Day
  Sex: Female

DRUGS (5)
  1. LEVOTHYROX [Concomitant]
     Active Substance: LEVOTHYROXINE
     Route: 064
  2. BETAMETHASONE. [Concomitant]
     Active Substance: BETAMETHASONE
     Route: 064
  3. HALDOL [Suspect]
     Active Substance: HALOPERIDOL
     Indication: PERSECUTORY DELUSION
     Route: 064
  4. SERESTA [Suspect]
     Active Substance: OXAZEPAM
     Indication: ABNORMAL BEHAVIOUR
     Route: 064
  5. LOXEN [Concomitant]
     Active Substance: NICARDIPINE HYDROCHLORIDE
     Route: 064

REACTIONS (7)
  - Poor sucking reflex [Recovered/Resolved]
  - Foetal growth restriction [Unknown]
  - Grip strength decreased [Recovered/Resolved]
  - Neonatal respiratory depression [Recovered/Resolved]
  - Foetal exposure during pregnancy [Unknown]
  - Hypotonia neonatal [Recovered/Resolved]
  - Premature baby [Unknown]

NARRATIVE: CASE EVENT DATE: 20150402
